FAERS Safety Report 9049668 (Version 3)
Quarter: 2013Q4

REPORT INFORMATION
  Report Type: Spontaneous
  Country: US (occurrence: US)
  Receive Date: 20130205
  Receipt Date: 20131014
  Transmission Date: 20140711
  Serious: Yes (Death, Hospitalization)
  Sender: FDA-Public Use
  Company Number: US-B.I. PHARMACEUTICALS,INC./RIDGEFIELD-2013-BI-02748BP

PATIENT
  Sex: Male
  Weight: 127.01 kg

DRUGS (1)
  1. PRADAXA [Suspect]
     Dates: start: 2011, end: 2012

REACTIONS (2)
  - Haemorrhage [Fatal]
  - Myocardial infarction [Fatal]
